FAERS Safety Report 20414723 (Version 1)
Quarter: 2022Q1

REPORT INFORMATION
  Report Type: Spontaneous
  Country: US (occurrence: US)
  Receive Date: 20220202
  Receipt Date: 20220202
  Transmission Date: 20220423
  Serious: Yes (Other)
  Sender: FDA-Public Use
  Company Number: US-drreddys-SPO/USA/22/0146301

PATIENT
  Age: 19 Year
  Sex: Male

DRUGS (1)
  1. ZENATANE [Suspect]
     Active Substance: ISOTRETINOIN
     Indication: Product used for unknown indication
     Dosage: RMA ISSUE DATE: 17 SEPTEMBER 2021 10:06:50 AM, 19 OCTOBER 2021 05:47:51 PM, 18 NOVEMBER 2021 09:30:0

REACTIONS (1)
  - Depression [Unknown]
